FAERS Safety Report 11040118 (Version 6)
Quarter: 2016Q3

REPORT INFORMATION
  Report Type: Spontaneous
  Country: US (occurrence: US)
  Receive Date: 20150416
  Receipt Date: 20160810
  Transmission Date: 20161109
  Serious: No
  Sender: FDA-Public Use
  Company Number: US-PFIZER INC-2015125970

PATIENT
  Age: 40 Year
  Sex: Female

DRUGS (23)
  1. LYRICA [Suspect]
     Active Substance: PREGABALIN
     Indication: FIBROMYALGIA
     Dosage: 150 MG, DAILY (AT BEDTIME)
     Route: 048
     Dates: start: 20151209
  2. LYRICA [Suspect]
     Active Substance: PREGABALIN
     Indication: PAIN
  3. ATORVASTATIN CALCIUM. [Concomitant]
     Active Substance: ATORVASTATIN CALCIUM
     Dosage: 20 MG, DAILY
     Route: 048
     Dates: start: 20151209
  4. PRAZOSIN HCL [Concomitant]
     Active Substance: PRAZOSIN HYDROCHLORIDE
     Dosage: 1 MG ORAL CAPSULE TAKE 3 TABS IN THE MORNING AND 1 TAB AT NIGHT
     Route: 048
     Dates: start: 20151209
  5. SUMATRIPTAN SUCCINATE. [Concomitant]
     Active Substance: SUMATRIPTAN SUCCINATE
     Indication: MIGRAINE
     Dosage: 100 MG, AS NEEDED  (MAY BE REPEAT IN 2 HOURS)
     Route: 048
  6. TIZANIDINE HCL [Concomitant]
     Active Substance: TIZANIDINE HYDROCHLORIDE
     Indication: PAIN
  7. LISINOPRIL. [Concomitant]
     Active Substance: LISINOPRIL
     Dosage: 5 MG, DAILY (AS DIRECTED)
     Route: 048
     Dates: start: 20151209
  8. METFORMIN HCL [Concomitant]
     Active Substance: METFORMIN HYDROCHLORIDE
     Dosage: 500 MG, DAILY (WITH FOOD)
     Route: 048
     Dates: start: 20151209
  9. BACLOFEN. [Concomitant]
     Active Substance: BACLOFEN
     Indication: PAIN
  10. DHEA [Concomitant]
     Active Substance: PRASTERONE
     Dosage: 25 MG, DAILY
     Route: 048
     Dates: start: 20160127
  11. OMEPRAZOLE. [Concomitant]
     Active Substance: OMEPRAZOLE
     Dosage: 40 MG, DAILY
     Route: 048
     Dates: start: 20151209
  12. PREMARIN [Concomitant]
     Active Substance: ESTROGENS, CONJUGATED
     Dosage: 1 G, 3X/WEEK(PREMARIN 0.625 MG/GM)
     Route: 067
     Dates: start: 20151223
  13. VAGIFEM [Concomitant]
     Active Substance: ESTRADIOL
     Dosage: 10 UG, THREE TIMES A WEEK
     Route: 067
     Dates: start: 20151223
  14. DICYCLOMINE HCL [Concomitant]
     Active Substance: DICYCLOMINE HYDROCHLORIDE
     Dosage: 20 MG, 4X/DAY
     Route: 048
     Dates: start: 20151209
  15. SERTRALINE HCL [Concomitant]
     Active Substance: SERTRALINE HYDROCHLORIDE
     Dosage: 100 MG, DAILY (AS DIRECTED)
     Route: 048
     Dates: start: 20151209
  16. BACLOFEN. [Concomitant]
     Active Substance: BACLOFEN
     Indication: MUSCLE SPASMS
     Dosage: 20 MG, AS NEEDED (1 TABLET BEDTIME PRN)
     Route: 048
     Dates: start: 20160127
  17. JANUVIA [Concomitant]
     Active Substance: SITAGLIPTIN PHOSPHATE
     Dosage: 50 MG, DAILY
     Route: 048
     Dates: start: 20151209
  18. SUMATRIPTAN SUCCINATE. [Concomitant]
     Active Substance: SUMATRIPTAN SUCCINATE
     Indication: HEADACHE
  19. PROAIR HFA [Concomitant]
     Active Substance: ALBUTEROL SULFATE
     Indication: DYSPNOEA
     Dosage: 2-4 PUFFS EVERY 4 HOURS PRN
     Dates: start: 20151223
  20. TIZANIDINE HCL [Concomitant]
     Active Substance: TIZANIDINE HYDROCHLORIDE
     Indication: MUSCLE SPASMS
     Dosage: 4 MG, 3X/DAY (AS NEEDED)
     Route: 048
     Dates: start: 20151209
  21. LYRICA [Suspect]
     Active Substance: PREGABALIN
     Indication: SPINAL OSTEOARTHRITIS
  22. DIAZEPAM. [Concomitant]
     Active Substance: DIAZEPAM
     Dosage: 10 MG, 2X/DAY
     Route: 048
     Dates: start: 20151209
  23. IBUPROFEN. [Concomitant]
     Active Substance: IBUPROFEN
     Indication: PAIN
     Dosage: 800 MG, DAILY (PRN)
     Route: 048
     Dates: start: 20160127

REACTIONS (2)
  - Renal disorder [Unknown]
  - Off label use [Unknown]
